FAERS Safety Report 13965738 (Version 1)
Quarter: 2017Q3

REPORT INFORMATION
  Report Type: Spontaneous
  Country: TR (occurrence: TR)
  Receive Date: 20170913
  Receipt Date: 20170913
  Transmission Date: 20171128
  Serious: Yes (Hospitalization)
  Sender: FDA-Public Use
  Company Number: TR-ACTELION-A-US2017-159424

PATIENT
  Age: 2 Year
  Sex: Female
  Weight: 7.5 kg

DRUGS (7)
  1. VENTAVIS [Suspect]
     Active Substance: ILOPROST
     Indication: PULMONARY HYPERTENSION
     Dosage: UNK
     Route: 055
  2. LASIX [Concomitant]
     Active Substance: FUROSEMIDE
  3. ECOPIRIN [Concomitant]
     Active Substance: ASPIRIN
  4. VENTAVIS [Suspect]
     Active Substance: ILOPROST
     Dosage: UNK, 6ID
     Route: 055
  5. BEPANTHOL (DEXPANTHENOL) [Suspect]
     Active Substance: DEXPANTHENOL
     Indication: ERYTHEMA
     Route: 065
  6. TRACLEER [Concomitant]
     Active Substance: BOSENTAN
     Indication: PULMONARY HYPERTENSION
  7. CAPTOPRIL. [Concomitant]
     Active Substance: CAPTOPRIL

REACTIONS (8)
  - Product use in unapproved indication [Unknown]
  - Erythema [Not Recovered/Not Resolved]
  - Oral mucosal erythema [Not Recovered/Not Resolved]
  - Off label use [Unknown]
  - Drug administered to patient of inappropriate age [Unknown]
  - Skin irritation [Unknown]
  - Cardiac disorder [Unknown]
  - Stomatitis [Unknown]

NARRATIVE: CASE EVENT DATE: 20170802
